FAERS Safety Report 10780449 (Version 1)
Quarter: 2015Q1

REPORT INFORMATION
  Report Type: Spontaneous
  Country: US (occurrence: US)
  Receive Date: 20150210
  Receipt Date: 20150210
  Transmission Date: 20150721
  Serious: No
  Sender: FDA-Public Use
  Company Number: US-GLAXOSMITHKLINE-A1078814A

PATIENT

DRUGS (2)
  1. TYKERB [Suspect]
     Active Substance: LAPATINIB DITOSYLATE
     Indication: GASTRIC CANCER
     Dosage: UPON FU ON 25JUL2014: 250 MG ONCE DAILY.
     Route: 065
     Dates: start: 20140404
  2. RADIATION THERAPY [Concomitant]
     Active Substance: RADIATION THERAPY

REACTIONS (8)
  - Nasal dryness [Unknown]
  - Rash [Unknown]
  - Drug dose omission [Unknown]
  - Adverse event [Unknown]
  - Acne [Unknown]
  - Skin fissures [Unknown]
  - Epistaxis [Unknown]
  - Malaise [Unknown]
